FAERS Safety Report 10657143 (Version 1)
Quarter: 2014Q4

REPORT INFORMATION
  Report Type: Spontaneous
  Country: US (occurrence: None)
  Receive Date: 20141215
  Receipt Date: 20141215
  Transmission Date: 20150529
  Serious: Yes (Other)
  Sender: FDA-Public Use
  Company Number: US-ALSI-201400247

PATIENT
  Age: 35 Year
  Sex: Male

DRUGS (3)
  1. NITROUS OXIDE. [Suspect]
     Active Substance: NITROUS OXIDE
     Indication: OCCUPATIONAL EXPOSURE TO PRODUCT
     Dosage: RESPIRATORY
  2. NITROUS OXIDE. [Suspect]
     Active Substance: NITROUS OXIDE
     Indication: DRUG ABUSE
     Dosage: RESPIRATORY
  3. OXYGEN. [Concomitant]
     Active Substance: OXYGEN

REACTIONS (4)
  - Occupational exposure to product [None]
  - Drug abuse [None]
  - Subacute combined cord degeneration [None]
  - Hypersomnia [None]
